FAERS Safety Report 22915708 (Version 6)
Quarter: 2024Q1

REPORT INFORMATION
  Report Type: Spontaneous
  Country: US (occurrence: US)
  Receive Date: 20230907
  Receipt Date: 20240126
  Transmission Date: 20240410
  Serious: No
  Sender: FDA-Public Use
  Company Number: US-TRAVERE-2023TVT00180

PATIENT
  Age: 82 Year
  Sex: Male

DRUGS (5)
  1. FILSPARI [Suspect]
     Active Substance: SPARSENTAN
     Indication: IgA nephropathy
     Dosage: 200MG 1 TABLET DAILY
     Route: 048
     Dates: start: 20230510
  2. FILSPARI [Suspect]
     Active Substance: SPARSENTAN
     Indication: Chronic kidney disease
     Dosage: 400MG 1 TABLET DAILY
     Route: 048
     Dates: start: 20230524
  3. FILSPARI [Suspect]
     Active Substance: SPARSENTAN
     Dosage: 200MG 1 TABLET DAILY
     Route: 048
  4. FILSPARI [Suspect]
     Active Substance: SPARSENTAN
     Dosage: 200MG 1 TABLET DAILY
     Route: 048
  5. FILSPARI [Suspect]
     Active Substance: SPARSENTAN
     Dosage: 200MG 1 TABLET DAILY
     Route: 048
     Dates: start: 202308

REACTIONS (7)
  - Fatigue [None]
  - Dizziness [Unknown]
  - Blood pressure decreased [Unknown]
  - Somnolence [Unknown]
  - Feeling abnormal [Unknown]
  - Diarrhoea [Unknown]
  - Constipation [Unknown]

NARRATIVE: CASE EVENT DATE: 20230510
